FAERS Safety Report 9154460 (Version 1)
Quarter: 2013Q1

REPORT INFORMATION
  Report Type: Report from Study
  Country: US (occurrence: US)
  Receive Date: 20130311
  Receipt Date: 20130311
  Transmission Date: 20140127
  Serious: Yes (Hospitalization)
  Sender: FDA-Public Use
  Company Number: US-ABBOTT-12P-163-0957421-00

PATIENT
  Age: 44 Year
  Sex: Female

DRUGS (6)
  1. LUPRON DEPOT 11.25 MG [Suspect]
     Indication: UTERINE LEIOMYOMA
     Dates: start: 201203
  2. LUPRON DEPOT 11.25 MG [Suspect]
     Indication: VAGINAL HAEMORRHAGE
  3. LUPRON DEPOT 3.75 MG [Suspect]
     Indication: UTERINE LEIOMYOMA
     Dates: start: 201206
  4. LUPRON DEPOT 3.75 MG [Suspect]
     Indication: VAGINAL HAEMORRHAGE
  5. LOW-OGESTREL [Concomitant]
     Indication: PRODUCT USED FOR UNKNOWN INDICATION
  6. LORTAB [Concomitant]
     Indication: PRODUCT USED FOR UNKNOWN INDICATION

REACTIONS (1)
  - Vaginal haemorrhage [Recovered/Resolved]
